FAERS Safety Report 8435073-2 (Version None)
Quarter: 2012Q2

REPORT INFORMATION
  Report Type: 
  Country: None (occurrence: None)
  Receive Date: 20120614
  Receipt Date: 20120606
  Transmission Date: 20120825
  Serious: Yes (Other)
  Sender: FDA-Public Use
  Company Number: PHHY2012AR049553

PATIENT
  Sex: Female

DRUGS (2)
  1. IMATINIB MESYLATE [Suspect]
     Dosage: 300 MG, DAILY
     Route: 048
  2. IMATINIB MESYLATE [Suspect]
     Dosage: 400 MG, DAILY
     Route: 048
     Dates: start: 20060701

REACTIONS (6)
  - HYPOAESTHESIA [None]
  - MUSCLE SPASMS [None]
  - ABDOMINAL WALL CYST [None]
  - PAIN IN EXTREMITY [None]
  - DIARRHOEA [None]
  - NAUSEA [None]
